FAERS Safety Report 5802227-0 (Version None)
Quarter: 2008Q3

REPORT INFORMATION
  Report Type: 
  Country: None (occurrence: None)
  Receive Date: 20080702
  Receipt Date: 20080619
  Transmission Date: 20090109
  Serious: Yes (Hospitalization)
  Sender: FDA-Public Use
  Company Number: 2008EU001209

PATIENT
  Age: 31 Year
  Sex: Male

DRUGS (8)
  1. PROGRAF [Suspect]
  2. CORTANCYL(PREDNISONE) [Suspect]
  3. FLAGYL [Suspect]
  4. ZITHROMAX [Suspect]
  5. BACTRIM(GUAIFENESIN, SULFAMETHOXAZOLE) [Suspect]
  6. ACTONEL [Suspect]
  7. PAROXETINE HCL [Suspect]
  8. MOPRAL(OMEPRAZOLE SODIUM) [Suspect]

REACTIONS (2)
  - SCOTOMA [None]
  - VISUAL ACUITY REDUCED [None]
